FAERS Safety Report 6117253-4 (Version None)
Quarter: 2009Q1

REPORT INFORMATION
  Report Type: 
  Country: None (occurrence: None)
  Receive Date: 20090314
  Receipt Date: 20090112
  Transmission Date: 20090719
  Serious: Yes (Hospitalization, Other)
  Sender: FDA-Public Use
  Company Number: US-ABBOTT-09P-163-0496818-00

PATIENT
  Sex: Male
  Weight: 65.83 kg

DRUGS (13)
  1. HUMIRA [Suspect]
     Indication: RHEUMATOID ARTHRITIS
     Dates: start: 20070101, end: 20080102
  2. HUMIRA [Suspect]
     Dates: start: 20080101, end: 20080102
  3. HUMIRA [Suspect]
     Dates: start: 20090102
  4. AMBIEN [Concomitant]
     Indication: INSOMNIA
     Dates: start: 20090103
  5. ASPIRIN [Concomitant]
     Indication: CARDIAC DISORDER
  6. CARDIZEM [Concomitant]
     Indication: CARDIAC DISORDER
  7. PLAVIX [Concomitant]
     Indication: CARDIAC DISORDER
  8. ZANTAC [Concomitant]
     Indication: GASTRIC DISORDER
  9. SINGULAIR [Concomitant]
     Indication: LUNG DISORDER
  10. THEOPHYLLINE [Concomitant]
     Indication: BRONCHOSPASM
  11. DARVOCET [Concomitant]
     Indication: PAIN
  12. NITROGLYCERIN [Concomitant]
     Indication: CHEST PAIN
  13. PREDNISONE [Concomitant]
     Indication: LUNG DISORDER

REACTIONS (7)
  - BRONCHITIS [None]
  - CHEST DISCOMFORT [None]
  - CORONARY ARTERY OCCLUSION [None]
  - DRUG INEFFECTIVE [None]
  - PNEUMONIA [None]
  - URINARY TRACT INFECTION [None]
  - WEIGHT DECREASED [None]
